FAERS Safety Report 20257743 (Version 1)
Quarter: 2021Q4

REPORT INFORMATION
  Report Type: Spontaneous
  Country: CA (occurrence: CA)
  Receive Date: 20211230
  Receipt Date: 20211230
  Transmission Date: 20220304
  Serious: Yes (Life-Threatening, Hospitalization)
  Sender: FDA-Public Use
  Company Number: None

PATIENT
  Age: 4 Year
  Sex: Male
  Weight: 20 kg

DRUGS (10)
  1. METHOTREXATE [Suspect]
     Active Substance: METHOTREXATE
     Indication: Leukaemia recurrent
     Dosage: 1 EVERY 36 HOURS
     Route: 042
  2. ASPARAGINASE ERWINIA CHRYSANTHEMI [Concomitant]
     Active Substance: ASPARAGINASE ERWINIA CHRYSANTHEMI
  3. CASPOFUNGIN [Concomitant]
     Active Substance: CASPOFUNGIN
  4. CYTARABINE [Concomitant]
     Active Substance: CYTARABINE
  5. SPRYCEL [Concomitant]
     Active Substance: DASATINIB
  6. HYDROCORTISONE [Concomitant]
     Active Substance: HYDROCORTISONE
  7. LEUCOVORIN [Concomitant]
     Active Substance: LEUCOVORIN
  8. LEVOFLOXACIN [Concomitant]
     Active Substance: LEVOFLOXACIN
  9. NYSTATIN [Concomitant]
     Active Substance: NYSTATIN
  10. SODIUM BICARBONATE [Concomitant]
     Active Substance: SODIUM BICARBONATE

REACTIONS (1)
  - Mucosal inflammation [Recovering/Resolving]
